FAERS Safety Report 21684246 (Version 1)
Quarter: 2022Q4

REPORT INFORMATION
  Report Type: Spontaneous
  Country: US (occurrence: US)
  Receive Date: 20221205
  Receipt Date: 20221205
  Transmission Date: 20230112
  Serious: Yes (Other)
  Sender: FDA-Public Use
  Company Number: US-009507513-2212USA000679

PATIENT

DRUGS (2)
  1. CUBICIN [Suspect]
     Active Substance: DAPTOMYCIN
     Indication: Enterococcal infection
     Dosage: RECEIVED A TOTAL 29 DOSES
  2. MEROPENEM [Concomitant]
     Active Substance: MEROPENEM
     Indication: Alcaligenes infection

REACTIONS (1)
  - Eosinophilic pneumonia [Recovered/Resolved]
